FAERS Safety Report 7497764-X (Version None)
Quarter: 2011Q2

REPORT INFORMATION
  Report Type: 
  Country: None (occurrence: None)
  Receive Date: 20110524
  Receipt Date: 20110510
  Transmission Date: 20111010
  Serious: Yes (Hospitalization, Other)
  Sender: FDA-Public Use
  Company Number: US-AMGEN-USASP2011018576

PATIENT
  Sex: Male

DRUGS (2)
  1. ARANESP [Suspect]
     Indication: DIALYSIS
     Dosage: 25 A?G, UNK
     Route: 042
     Dates: start: 20110125
  2. PLASMA [Concomitant]

REACTIONS (9)
  - THERAPEUTIC RESPONSE DECREASED [None]
  - LUNG CONSOLIDATION [None]
  - RETICULOCYTE COUNT DECREASED [None]
  - HAEMATOCRIT DECREASED [None]
  - PLEURAL EFFUSION [None]
  - BLOOD PRODUCT TRANSFUSION [None]
  - HEPATITIS B SURFACE ANTIGEN POSITIVE [None]
  - PNEUMONIA [None]
  - OCCULT BLOOD POSITIVE [None]
